FAERS Safety Report 15292623 (Version 1)
Quarter: 2018Q3

REPORT INFORMATION
  Report Type: Spontaneous
  Country: US (occurrence: US)
  Receive Date: 20180819
  Receipt Date: 20180819
  Transmission Date: 20181010
  Serious: No
  Sender: FDA-Public Use
  Company Number: US-009507513-1808USA004331

PATIENT
  Sex: Female

DRUGS (2)
  1. MINOCYCLINE [Concomitant]
     Active Substance: MINOCYCLINE\MINOCYCLINE HYDROCHLORIDE
  2. STROMECTOL [Suspect]
     Active Substance: IVERMECTIN
     Dosage: 3 MG, UNK

REACTIONS (2)
  - Adverse event [Unknown]
  - Pruritus [Not Recovered/Not Resolved]
